FAERS Safety Report 16266689 (Version 2)
Quarter: 2019Q2

REPORT INFORMATION
  Report Type: Report from Study
  Country: FR (occurrence: FR)
  Receive Date: 20190502
  Receipt Date: 20190509
  Transmission Date: 20190711
  Serious: Yes (Death, Other)
  Sender: FDA-Public Use
  Company Number: FR-SEATTLE GENETICS-2017SGN00372

PATIENT
  Age: 74 Year
  Sex: Male
  Weight: 59 kg

DRUGS (10)
  1. METFORMINE [Concomitant]
     Active Substance: METFORMIN HYDROCHLORIDE
     Indication: DIABETES MELLITUS
     Dosage: UNK
     Route: 048
     Dates: end: 20180913
  2. TRILEPTAL [Concomitant]
     Active Substance: OXCARBAZEPINE
     Indication: EPILEPSY
     Dosage: UNK
     Route: 048
     Dates: start: 2004, end: 20180913
  3. KARDEGIC [Concomitant]
     Active Substance: ASPIRIN DL-LYSINE
     Indication: THROMBOSIS PROPHYLAXIS
     Dosage: UNK
     Route: 048
     Dates: end: 20180913
  4. VALACICLOVIR [Concomitant]
     Active Substance: VALACYCLOVIR HYDROCHLORIDE
     Indication: ANTIVIRAL PROPHYLAXIS
     Dosage: UNK
     Route: 048
     Dates: start: 201804, end: 20180913
  5. BACTRIM [Concomitant]
     Active Substance: SULFAMETHOXAZOLE\TRIMETHOPRIM
     Indication: PROPHYLAXIS
     Dosage: UNK
     Route: 048
     Dates: start: 201804, end: 20180913
  6. BRENTUXIMAB VEDOTIN-MPI [Suspect]
     Active Substance: BRENTUXIMAB VEDOTIN
     Indication: PERIPHERAL T-CELL LYMPHOMA UNSPECIFIED
     Dosage: 130 MG, UNK
     Route: 065
     Dates: start: 20161115, end: 20170921
  7. BISOCE [Concomitant]
     Active Substance: BISOPROLOL
     Indication: ARRHYTHMIA SUPRAVENTRICULAR
     Dosage: UNK
     Route: 048
     Dates: end: 20180913
  8. FUROSEMIDE. [Concomitant]
     Active Substance: FUROSEMIDE
     Indication: ARRHYTHMIA SUPRAVENTRICULAR
     Dosage: UNK
     Route: 048
     Dates: end: 20180913
  9. BENDAMUSTINE [Concomitant]
     Active Substance: BENDAMUSTINE
     Dosage: UNK
     Route: 065
     Dates: start: 20161115
  10. GLICLAZIDE [Concomitant]
     Active Substance: GLICLAZIDE
     Indication: DIABETES MELLITUS
     Dosage: UNK
     Route: 048
     Dates: end: 20180913

REACTIONS (5)
  - Neuropathy peripheral [Not Recovered/Not Resolved]
  - Cardiac failure [Fatal]
  - Off label use [Unknown]
  - Peripheral T-cell lymphoma unspecified [Unknown]
  - Sepsis [Fatal]

NARRATIVE: CASE EVENT DATE: 201705
